FAERS Safety Report 24589771 (Version 3)
Quarter: 2025Q1

REPORT INFORMATION
  Report Type: Spontaneous
  Country: US (occurrence: US)
  Receive Date: 20241107
  Receipt Date: 20250306
  Transmission Date: 20250409
  Serious: Yes (Other)
  Sender: BAYER HEALTHCARE PHARMACEUTICALS INC.
  Company Number: US-BAYER-2024A157522

PATIENT
  Age: 61 Year
  Sex: Male

DRUGS (6)
  1. JIVI [Suspect]
     Active Substance: DAMOCTOCOG ALFA PEGOL
     Indication: Haemorrhage
  2. JIVI [Suspect]
     Active Substance: DAMOCTOCOG ALFA PEGOL
     Indication: Prophylaxis
     Dosage: JIVI 1083 UNITS/INFUSE 3200 UNITS BIW PRN
     Route: 042
  3. JIVI [Suspect]
     Active Substance: DAMOCTOCOG ALFA PEGOL
     Indication: Haemorrhage
     Dosage: JIVI 2107 UNITS/ INFUSE 3200 UNITS BIW PRN
     Route: 042
  4. JIVI [Suspect]
     Active Substance: DAMOCTOCOG ALFA PEGOL
     Indication: Haemorrhage
     Route: 042
  5. JIVI [Suspect]
     Active Substance: DAMOCTOCOG ALFA PEGOL
     Indication: Haemorrhage
     Route: 042
     Dates: start: 20250213
  6. METOPROLOL [Concomitant]
     Active Substance: METOPROLOL
     Dosage: 25 MG, QD

REACTIONS (6)
  - Haemorrhage [Recovered/Resolved]
  - Dental implantation [None]
  - Drug ineffective [None]
  - Haemorrhage [None]
  - Haemarthrosis [None]
  - Palpitations [None]

NARRATIVE: CASE EVENT DATE: 20241021
